FAERS Safety Report 23897057 (Version 2)
Quarter: 2024Q2

REPORT INFORMATION
  Report Type: Report from Study
  Country: AT (occurrence: AT)
  Receive Date: 20240524
  Receipt Date: 20240529
  Transmission Date: 20240716
  Serious: Yes (Life-Threatening, Other)
  Sender: FDA-Public Use
  Company Number: AT-PFM-2024-03045

PATIENT
  Age: 61 Year
  Sex: Male
  Weight: 70 kg

DRUGS (64)
  1. ENCORAFENIB [Suspect]
     Active Substance: ENCORAFENIB
     Indication: Malignant melanoma
     Dosage: 450 MG, QD (1/DAY)
     Route: 048
     Dates: start: 20210407, end: 20220708
  2. ENCORAFENIB [Suspect]
     Active Substance: ENCORAFENIB
     Dosage: 450 MG, QD (1/DAY)
     Route: 048
     Dates: start: 20210503
  3. ENCORAFENIB [Suspect]
     Active Substance: ENCORAFENIB
     Dosage: 300 MG, QD (1/DAY)
     Route: 048
     Dates: start: 20210820
  4. BINIMETINIB [Suspect]
     Active Substance: BINIMETINIB
     Indication: Malignant melanoma
     Dosage: 45 MG, BID (2/DAY)
     Route: 048
     Dates: start: 20210407, end: 20220708
  5. BINIMETINIB [Suspect]
     Active Substance: BINIMETINIB
     Dosage: 45 MG, QD (1/DAY)
     Route: 048
     Dates: start: 20210503
  6. BINIMETINIB [Suspect]
     Active Substance: BINIMETINIB
     Dosage: 30 MG, BID (2/DAY)
     Route: 048
     Dates: start: 20210924
  7. VALSARTAN [Concomitant]
     Active Substance: VALSARTAN
     Dosage: UNK
     Route: 065
     Dates: start: 20191129, end: 2022
  8. UROSIN [ALLOPURINOL] [Concomitant]
     Dosage: UNK
     Route: 065
     Dates: start: 20200701, end: 20210425
  9. UROSIN [ALLOPURINOL] [Concomitant]
     Dosage: UNK
     Route: 065
     Dates: start: 20210924, end: 2022
  10. BISOPROLOL FUMARATE [Concomitant]
     Active Substance: BISOPROLOL FUMARATE
     Dosage: UNK
     Route: 065
     Dates: start: 202011, end: 2022
  11. AMLODIPINE [Concomitant]
     Active Substance: AMLODIPINE BESYLATE
     Dosage: UNK
     Route: 065
     Dates: start: 20210318, end: 2022
  12. DEXAMETHASONE [Concomitant]
     Active Substance: DEXAMETHASONE
     Indication: Prophylaxis
     Dosage: UNK
     Route: 065
     Dates: start: 202011, end: 2022
  13. PANTOPRAZOLE SODIUM [Concomitant]
     Active Substance: PANTOPRAZOLE SODIUM
     Indication: Prophylaxis
     Dosage: UNK
     Route: 065
     Dates: start: 20210318, end: 20210425
  14. LEVETIRACETAM [Concomitant]
     Active Substance: LEVETIRACETAM
     Indication: Circulatory collapse
     Dosage: UNK
     Route: 065
     Dates: start: 202011, end: 20210425
  15. LEVETIRACETAM [Concomitant]
     Active Substance: LEVETIRACETAM
     Indication: Prophylaxis
     Dosage: UNK
     Route: 065
     Dates: start: 20210826, end: 20211106
  16. LEVETIRACETAM [Concomitant]
     Active Substance: LEVETIRACETAM
     Dosage: UNK
     Route: 065
     Dates: start: 20211104, end: 20211106
  17. LEVETIRACETAM [Concomitant]
     Active Substance: LEVETIRACETAM
     Dosage: UNK
     Route: 065
     Dates: start: 20220709, end: 2022
  18. CLOBAZAM [Concomitant]
     Active Substance: CLOBAZAM
     Indication: Prophylaxis
     Dosage: UNK
     Route: 065
     Dates: start: 20210226, end: 20210425
  19. CLOBAZAM [Concomitant]
     Active Substance: CLOBAZAM
     Dosage: UNK
     Route: 065
     Dates: start: 20210510, end: 20210517
  20. CLOBAZAM [Concomitant]
     Active Substance: CLOBAZAM
     Dosage: UNK
     Route: 065
     Dates: start: 202105, end: 2022
  21. SPIKEVAX [Concomitant]
     Dosage: UNK
     Route: 065
     Dates: start: 20210330
  22. SPIKEVAX [Concomitant]
     Dosage: UNK
     Route: 065
     Dates: start: 20210427
  23. VIMPAT [Concomitant]
     Active Substance: LACOSAMIDE
     Indication: Prophylaxis
     Dosage: UNK
     Route: 065
     Dates: start: 20210407, end: 2022
  24. VIMPAT [Concomitant]
     Active Substance: LACOSAMIDE
     Dosage: UNK
     Route: 065
     Dates: start: 20220709, end: 2022
  25. VIMPAT [Concomitant]
     Active Substance: LACOSAMIDE
     Dosage: UNK
     Route: 065
     Dates: start: 202207, end: 2022
  26. CALCIUM CARBONATE\CHOLECALCIFEROL [Concomitant]
     Active Substance: CALCIUM CARBONATE\CHOLECALCIFEROL
     Indication: Prophylaxis
     Dosage: UNK
     Route: 065
     Dates: start: 20210407, end: 2022
  27. ESOMEPRAZOLE [Concomitant]
     Active Substance: ESOMEPRAZOLE
     Indication: Pain in extremity
     Dosage: UNK
     Route: 065
     Dates: start: 20210407, end: 2022
  28. ESOMEPRAZOLE [Concomitant]
     Active Substance: ESOMEPRAZOLE
     Indication: Erythema
  29. ESOMEPRAZOLE [Concomitant]
     Active Substance: ESOMEPRAZOLE
     Indication: Subcutaneous abscess
  30. VALPROATE SODIUM [Concomitant]
     Active Substance: VALPROATE SODIUM
     Indication: Prophylaxis
     Dosage: UNK
     Route: 065
     Dates: start: 20210407, end: 2022
  31. VALPROATE SODIUM [Concomitant]
     Active Substance: VALPROATE SODIUM
     Dosage: UNK
     Route: 065
     Dates: start: 202207, end: 2022
  32. RISPERDAL [Concomitant]
     Active Substance: RISPERIDONE
     Indication: Prophylaxis
     Dosage: UNK
     Route: 065
     Dates: start: 20210407, end: 2022
  33. ENOXAPARIN SODIUM [Concomitant]
     Active Substance: ENOXAPARIN SODIUM
     Indication: Prophylaxis
     Dosage: UNK
     Route: 065
     Dates: start: 20210407, end: 20210411
  34. ENOXAPARIN SODIUM [Concomitant]
     Active Substance: ENOXAPARIN SODIUM
     Dosage: UNK
     Dates: start: 202207, end: 202207
  35. EMSER [CETYLPYRIDINIUM CHLORIDE;EMSER SALT;MENTHOL] [Concomitant]
     Indication: Prophylaxis
     Dosage: UNK
     Route: 065
     Dates: start: 20210407, end: 20210412
  36. BEPANTHEN [PANTHENOL] [Concomitant]
     Indication: Prophylaxis
     Dosage: UNK
     Route: 065
     Dates: start: 20210426, end: 2022
  37. KEPPRA [Concomitant]
     Active Substance: LEVETIRACETAM
     Indication: Prophylaxis
     Dosage: UNK
     Route: 065
     Dates: start: 20210429, end: 2022
  38. KEPPRA [Concomitant]
     Active Substance: LEVETIRACETAM
     Dosage: UNK
     Route: 065
     Dates: start: 20210510, end: 20210510
  39. ELOMEL ISOTON [Concomitant]
     Indication: Prophylaxis
     Dosage: UNK
     Route: 065
     Dates: start: 20210510, end: 20210510
  40. ELOMEL ISOTON [Concomitant]
     Indication: Circulatory collapse
     Dosage: UNK
     Route: 065
     Dates: start: 20211104, end: 20211105
  41. DORMICUM [NITRAZEPAM] [Concomitant]
     Indication: Prophylaxis
     Dosage: UNK
     Route: 065
     Dates: start: 20210510, end: 20210510
  42. DORMICUM [NITRAZEPAM] [Concomitant]
     Dosage: UNK
     Route: 065
     Dates: start: 20220709, end: 2022
  43. AUGMENTIN [Concomitant]
     Active Substance: AMOXICILLIN\CLAVULANATE POTASSIUM
     Indication: Aspiration
     Dosage: UNK
     Route: 065
     Dates: start: 20210526, end: 20210604
  44. METHYLPREDNISOLONE ACEPONATE [Concomitant]
     Active Substance: METHYLPREDNISOLONE ACEPONATE
     Indication: Photosensitivity reaction
     Dosage: UNK
     Route: 065
     Dates: start: 20210604, end: 20210722
  45. CETIRIZINE [Concomitant]
     Active Substance: CETIRIZINE HYDROCHLORIDE
     Indication: Photosensitivity reaction
     Dosage: UNK
     Route: 065
     Dates: start: 20210614, end: 20210722
  46. PREDNISOLONE [Concomitant]
     Active Substance: PREDNISOLONE
     Indication: Prophylaxis
     Dosage: UNK
     Route: 065
     Dates: start: 20210707, end: 20210707
  47. DICLOFENAC EPOLAMINE [Concomitant]
     Active Substance: DICLOFENAC EPOLAMINE
     Indication: Subcutaneous abscess
     Dosage: UNK
     Route: 065
     Dates: start: 20210820, end: 20210827
  48. DICLOFENAC EPOLAMINE [Concomitant]
     Active Substance: DICLOFENAC EPOLAMINE
     Indication: Pain in extremity
  49. MAGNESIUM CARBONATE\MAGNESIUM OXIDE [Concomitant]
     Active Substance: MAGNESIUM CARBONATE\MAGNESIUM OXIDE
     Indication: Prophylaxis
     Dosage: UNK
     Route: 065
     Dates: start: 20210906, end: 20220316
  50. COMIRNATY [Concomitant]
     Dosage: UNK
     Route: 065
     Dates: start: 20211014
  51. LASIX [Concomitant]
     Active Substance: FUROSEMIDE
     Indication: Oedema
     Dosage: UNK
     Route: 065
     Dates: start: 20211028, end: 20220316
  52. DIOVAN [Concomitant]
     Active Substance: VALSARTAN
     Indication: Prophylaxis
     Dosage: UNK
     Route: 065
     Dates: start: 20211104, end: 20211106
  53. NORVASC [Concomitant]
     Active Substance: AMLODIPINE BESYLATE
     Indication: Prophylaxis
     Dosage: UNK
     Route: 065
     Dates: start: 20211104, end: 20211106
  54. BETAMETHASONE DIPROPIONATE\GENTAMICIN SULFATE [Concomitant]
     Active Substance: BETAMETHASONE DIPROPIONATE\GENTAMICIN SULFATE
     Indication: Erythema
     Dosage: UNK
     Route: 065
     Dates: start: 20220120, end: 20220124
  55. POLIDOCANOL\UREA [Concomitant]
     Active Substance: POLIDOCANOL\UREA
     Indication: Erythema
     Dosage: UNK
     Route: 065
     Dates: start: 20220125, end: 20220316
  56. LEVODOPA [Concomitant]
     Active Substance: LEVODOPA
     Indication: Prophylaxis
     Dosage: UNK
     Route: 065
     Dates: start: 202203, end: 2022
  57. ASTEMIZOLE [Concomitant]
     Active Substance: ASTEMIZOLE
     Dosage: UNK
     Route: 065
     Dates: start: 20220709, end: 2022
  58. SODIUM CHLORIDE [Concomitant]
     Active Substance: SODIUM CHLORIDE
     Dosage: UNK
     Route: 065
     Dates: start: 20220709, end: 2022
  59. PIPERACILLIN SODIUM\TAZOBACTAM SODIUM [Concomitant]
     Active Substance: PIPERACILLIN SODIUM\TAZOBACTAM SODIUM
     Dosage: UNK
     Route: 065
     Dates: start: 20220709, end: 2022
  60. ACETAMINOPHEN\CAFFEINE\PROPYPHENAZONE [Concomitant]
     Active Substance: ACETAMINOPHEN\CAFFEINE\PROPYPHENAZONE
     Dosage: UNK
     Route: 065
     Dates: start: 20220709, end: 2022
  61. CITRIC ACID MONOHYDRATE\POTASSIUM BICARBONATE\POTASSIUM CITRATE [Concomitant]
     Active Substance: CITRIC ACID MONOHYDRATE\POTASSIUM BICARBONATE\POTASSIUM CITRATE
     Dosage: UNK
     Route: 065
     Dates: start: 202207, end: 2022
  62. SCOPOLAMINE [Concomitant]
     Active Substance: SCOPOLAMINE
     Indication: Prophylaxis
     Dosage: UNK
     Route: 065
     Dates: start: 202207, end: 2022
  63. HYALURONATE SODIUM\TREHALOSE [Concomitant]
     Active Substance: HYALURONATE SODIUM\TREHALOSE
     Indication: Prophylaxis
     Dosage: UNK
     Route: 065
     Dates: start: 202207, end: 2022
  64. EMSER [CETYLPYRIDINIUM CHLORIDE;EMSER SALT;MENTHOL] [Concomitant]
     Indication: Prophylaxis
     Dosage: UNK
     Route: 065
     Dates: start: 20210407, end: 20210412

REACTIONS (3)
  - Hyponatraemia [Recovered/Resolved]
  - Hypokalaemia [Recovered/Resolved]
  - Hypernatraemia [Recovered/Resolved]

NARRATIVE: CASE EVENT DATE: 20220709
